FAERS Safety Report 12919859 (Version 1)
Quarter: 2016Q4

REPORT INFORMATION
  Report Type: Spontaneous
  Country: US (occurrence: US)
  Receive Date: 20161103
  Receipt Date: 20161103
  Transmission Date: 20170207
  Serious: No
  Sender: FDA-Public Use
  Company Number: None

PATIENT
  Age: 72 Year
  Sex: Female

DRUGS (1)
  1. REBIF [Suspect]
     Active Substance: INTERFERON BETA-1A
     Dosage: 44 MCG SQ 3 TIM
     Route: 058
     Dates: start: 20160101

REACTIONS (3)
  - Injection site erythema [None]
  - Scar [None]
  - Wrong technique in product usage process [None]

NARRATIVE: CASE EVENT DATE: 20161103
